FAERS Safety Report 7389950-4 (Version None)
Quarter: 2011Q2

REPORT INFORMATION
  Report Type: 
  Country: None (occurrence: None)
  Receive Date: 20110401
  Receipt Date: 20110330
  Transmission Date: 20111010
  Serious: Yes (Other)
  Sender: FDA-Public Use
  Company Number: CN-ABBOTT-11P-035-0715266-00

PATIENT
  Sex: Male

DRUGS (3)
  1. HYTRIN [Suspect]
     Indication: BENIGN PROSTATIC HYPERPLASIA
     Route: 048
     Dates: start: 20110301, end: 20110301
  2. UNSPECIFIED ANTIHYPERTENSIVE AGENT [Concomitant]
     Indication: PRODUCT USED FOR UNKNOWN INDICATION
     Route: 048
  3. FINASTERIDE [Concomitant]
     Indication: PRODUCT USED FOR UNKNOWN INDICATION
     Route: 048
     Dates: start: 20110301

REACTIONS (2)
  - SHOCK [None]
  - DIZZINESS [None]
